FAERS Safety Report 13779431 (Version 1)
Quarter: 2017Q3

REPORT INFORMATION
  Report Type: Spontaneous
  Country: GB (occurrence: GB)
  Receive Date: 20170721
  Receipt Date: 20170721
  Transmission Date: 20171127
  Serious: Yes (Death)
  Sender: FDA-Public Use
  Company Number: GB-INTERNATIONAL MEDICATION SYSTEMS, LIMITED-2023616

PATIENT
  Age: 35 Year
  Sex: Male

DRUGS (5)
  1. MORPHINE [Suspect]
     Active Substance: MORPHINE
  2. PARACETAMOL [Suspect]
     Active Substance: ACETAMINOPHEN
  3. PREGABALIN. [Suspect]
     Active Substance: PREGABALIN
  4. MIRTAZAPINE. [Suspect]
     Active Substance: MIRTAZAPINE
  5. MEPHEDRONE [Suspect]
     Active Substance: MEPHEDRONE

REACTIONS (3)
  - Death [Fatal]
  - Drug abuse [Fatal]
  - Acute respiratory failure [Fatal]
